FAERS Safety Report 8125100-4 (Version None)
Quarter: 2012Q1

REPORT INFORMATION
  Report Type: 
  Country: None (occurrence: None)
  Receive Date: 20120209
  Receipt Date: 20120130
  Transmission Date: 20120608
  Serious: Yes (Death)
  Sender: FDA-Public Use
  Company Number: US-ROCHE-1034056

PATIENT
  Sex: Male

DRUGS (8)
  1. GLIPIZIDE [Concomitant]
  2. AVAPRO [Concomitant]
  3. COUMADIN [Concomitant]
  4. FLOMAX [Concomitant]
  5. PRESERVISION LUTEIN [Concomitant]
  6. LUCENTIS [Suspect]
     Indication: AGE-RELATED MACULAR DEGENERATION
     Dates: start: 20041205, end: 20061206
  7. AVASTIN [Suspect]
     Indication: AGE-RELATED MACULAR DEGENERATION
     Dates: start: 20051105, end: 20060502
  8. MACUGEN [Suspect]
     Indication: AGE-RELATED MACULAR DEGENERATION
     Dates: start: 20050218, end: 20050927

REACTIONS (1)
  - DEATH [None]
